FAERS Safety Report 9855451 (Version 1)
Quarter: 2014Q1

REPORT INFORMATION
  Report Type: Spontaneous
  Country: US (occurrence: None)
  Receive Date: 20140129
  Receipt Date: 20140129
  Transmission Date: 20141002
  Serious: Yes (Hospitalization)
  Sender: FDA-Public Use
  Company Number: None

PATIENT
  Age: 78 Year
  Sex: Female
  Weight: 67.2 kg

DRUGS (1)
  1. EXPAREL [Suspect]
     Indication: MASTECTOMY
     Dosage: 266MG/20 ML ONCE INFILITRATION
     Dates: start: 20131108, end: 20131108

REACTIONS (4)
  - Atrioventricular block [None]
  - Atrioventricular block complete [None]
  - Depressed level of consciousness [None]
  - Post procedural complication [None]
